FAERS Safety Report 9910750 (Version 1)
Quarter: 2014Q1

REPORT INFORMATION
  Report Type: Spontaneous
  Country: ES (occurrence: ES)
  Receive Date: 20140219
  Receipt Date: 20140219
  Transmission Date: 20141002
  Serious: Yes (Death, Other)
  Sender: FDA-Public Use
  Company Number: ES-BAXTER-2014BAX007943

PATIENT
  Age: 2 Month
  Sex: Male

DRUGS (2)
  1. KIOVIG 100 MG/ML SOLUCI?N PARA PERFUSI?N 20G/200ML [Suspect]
     Indication: COMBINED IMMUNODEFICIENCY
     Route: 042
  2. COTRIMOXAZOLE [Suspect]
     Indication: PROPHYLAXIS
     Route: 065

REACTIONS (2)
  - Drug ineffective [Not Recovered/Not Resolved]
  - Cytomegalovirus infection [Fatal]
